FAERS Safety Report 9714153 (Version 1)
Quarter: 2013Q4

REPORT INFORMATION
  Report Type: Spontaneous
  Country: US (occurrence: US)
  Receive Date: 20131126
  Receipt Date: 20131126
  Transmission Date: 20140711
  Serious: No
  Sender: FDA-Public Use
  Company Number: US-GILEAD-2008-0019073

PATIENT
  Sex: Male
  Weight: 68.04 kg

DRUGS (15)
  1. LETAIRIS [Suspect]
     Indication: PULMONARY ARTERIAL HYPERTENSION
     Route: 048
     Dates: start: 20081110
  2. FOLIC ACID [Concomitant]
  3. SYNTHROID [Concomitant]
  4. LANOXIN [Concomitant]
  5. LISINOPRIL [Concomitant]
  6. SIMVASTATIN [Concomitant]
  7. ASPIRIN [Concomitant]
  8. HCTZ [Concomitant]
  9. MAGNESIUM OXIDE [Concomitant]
  10. ADVAIR DISKUS [Concomitant]
  11. NEXIUM [Concomitant]
  12. SPIRIVA HANIHALER [Concomitant]
  13. HYDROCODONE-APAP [Concomitant]
  14. SPECTRAVITE MULTIVITAMIN [Concomitant]
  15. VITMAIN B-12 [Concomitant]

REACTIONS (2)
  - Dyspnoea [None]
  - Nasal congestion [None]
